FAERS Safety Report 17758262 (Version 1)
Quarter: 2020Q2

REPORT INFORMATION
  Report Type: Spontaneous
  Country: CN (occurrence: CN)
  Receive Date: 20200507
  Receipt Date: 20200507
  Transmission Date: 20200714
  Serious: Yes (Other)
  Sender: FDA-Public Use
  Company Number: CN-ROCHE-2593276

PATIENT
  Age: 82 Year
  Sex: Male

DRUGS (9)
  1. CAPECITABINE. [Suspect]
     Active Substance: CAPECITABINE
     Indication: RECTAL ADENOCARCINOMA
     Route: 048
     Dates: start: 201807, end: 201910
  2. CALCIUM FOLINATE [Concomitant]
     Active Substance: LEUCOVORIN CALCIUM
  3. BEVACIZUMAB. [Suspect]
     Active Substance: BEVACIZUMAB
     Indication: METASTASES TO LUNG
  4. CAPECITABINE. [Suspect]
     Active Substance: CAPECITABINE
     Indication: METASTASES TO LUNG
  5. OXALIPLATIN. [Concomitant]
     Active Substance: OXALIPLATIN
  6. FLUOROURACIL. [Concomitant]
     Active Substance: FLUOROURACIL
  7. BEVACIZUMAB. [Suspect]
     Active Substance: BEVACIZUMAB
     Indication: RECTAL ADENOCARCINOMA
     Route: 042
     Dates: start: 201804, end: 201807
  8. FRUQUINTINIB. [Concomitant]
     Active Substance: FRUQUINTINIB
  9. REGORAFENIB. [Concomitant]
     Active Substance: REGORAFENIB

REACTIONS (8)
  - Incision site impaired healing [Unknown]
  - Palmar-plantar erythrodysaesthesia syndrome [Unknown]
  - Lymphadenitis [Unknown]
  - Asthenia [Unknown]
  - Mouth ulceration [Unknown]
  - Pneumonitis [Unknown]
  - Anaemia [Unknown]
  - Intestinal obstruction [Unknown]

NARRATIVE: CASE EVENT DATE: 2019
